FAERS Safety Report 5663724-4 (Version None)
Quarter: 2008Q1

REPORT INFORMATION
  Report Type: 
  Country: None (occurrence: None)
  Receive Date: 20080307
  Receipt Date: 20080227
  Transmission Date: 20080703
  Serious: Yes (Other)
  Sender: FDA-Public Use
  Company Number: CHPA2008US03735

PATIENT
  Age: 72 Year
  Sex: Female
  Weight: 60.8 kg

DRUGS (4)
  1. TRANSDERM SCOP [Suspect]
     Indication: MOTION SICKNESS
     Dosage: 1.5MG, TRANSDERMAL
     Route: 062
     Dates: start: 20080210, end: 20080212
  2. LISINOPRIL [Concomitant]
  3. SIMVASTATIN [Concomitant]
  4. TAMOXIFEN CITRATE [Concomitant]

REACTIONS (4)
  - ABNORMAL BEHAVIOUR [None]
  - DIZZINESS [None]
  - HALLUCINATION [None]
  - MEMORY IMPAIRMENT [None]
